FAERS Safety Report 22536665 (Version 1)
Quarter: 2023Q2

REPORT INFORMATION
  Report Type: Report from Study
  Country: US (occurrence: US)
  Receive Date: 20230608
  Receipt Date: 20230608
  Transmission Date: 20230722
  Serious: Yes (Other)
  Sender: FDA-Public Use
  Company Number: US-SUN PHARMACEUTICAL INDUSTRIES LTD-2023R1-393403

PATIENT
  Age: 27 Year
  Sex: Female

DRUGS (5)
  1. DOXYCYCLINE [Suspect]
     Active Substance: DOXYCYCLINE
     Indication: Giant papillary conjunctivitis
     Dosage: 50 MILLIGRAM, DAILY
     Route: 048
  2. LOTEPREDNOL [Suspect]
     Active Substance: LOTEPREDNOL
     Indication: Giant papillary conjunctivitis
     Dosage: UNK
     Route: 065
  3. PREDNISOLONE [Suspect]
     Active Substance: PREDNISOLONE
     Indication: Giant papillary conjunctivitis
     Dosage: 4 TIMES A DAY
     Route: 065
  4. ERYTHROMYCIN [Suspect]
     Active Substance: ERYTHROMYCIN
     Indication: Giant papillary conjunctivitis
     Dosage: TWICE A DAY
     Route: 065
  5. VITAMIN A [Suspect]
     Active Substance: VITAMIN A
     Indication: Giant papillary conjunctivitis
     Dosage: UNK
     Route: 048

REACTIONS (1)
  - Therapy non-responder [Unknown]
